FAERS Safety Report 11839347 (Version 1)
Quarter: 2015Q4

REPORT INFORMATION
  Report Type: Spontaneous
  Country: US (occurrence: US)
  Receive Date: 20151216
  Receipt Date: 20151216
  Transmission Date: 20160305
  Serious: Yes (Death)
  Sender: FDA-Public Use
  Company Number: US-JNJFOC-20151204548

PATIENT
  Age: 53 Year
  Sex: Male

DRUGS (4)
  1. OXYCODONE [Suspect]
     Active Substance: OXYCODONE
     Indication: SUICIDE ATTEMPT
     Route: 048
  2. PREGABALIN. [Suspect]
     Active Substance: PREGABALIN
     Indication: SUICIDE ATTEMPT
     Route: 048
  3. SALICYLATE [Suspect]
     Active Substance: SALICYLIC ACID
     Indication: SUICIDE ATTEMPT
     Route: 048
  4. BENZODIAZEPINE DERIVATIVES [Suspect]
     Active Substance: BENZODIAZEPINE
     Indication: SUICIDE ATTEMPT
     Route: 048

REACTIONS (4)
  - Cardiac arrest [None]
  - Respiratory arrest [None]
  - Toxicity to various agents [Fatal]
  - Completed suicide [None]
